FAERS Safety Report 11858285 (Version 1)
Quarter: 2015Q4

REPORT INFORMATION
  Report Type: Spontaneous
  Country: CH (occurrence: CH)
  Receive Date: 20151222
  Receipt Date: 20151222
  Transmission Date: 20160305
  Serious: Yes (Life-Threatening)
  Sender: FDA-Public Use
  Company Number: CH-GLAXOSMITHKLINE-CH2015177331

PATIENT
  Age: 44 Year
  Sex: Female

DRUGS (7)
  1. DORMICUM [Suspect]
     Active Substance: MIDAZOLAM\MIDAZOLAM HYDROCHLORIDE
     Indication: LIMB OPERATION
     Route: 040
     Dates: start: 20150715, end: 20150715
  2. NAROPIN [Suspect]
     Active Substance: ROPIVACAINE HYDROCHLORIDE
     Indication: LIMB OPERATION
     Route: 065
     Dates: start: 20150715, end: 20150715
  3. MEPIVACAINE [Suspect]
     Active Substance: MEPIVACAINE\MEPIVACAINE HYDROCHLORIDE
     Indication: LIMB OPERATION
     Route: 065
     Dates: start: 20150715, end: 20150715
  4. FRAXIPARINE [Concomitant]
     Active Substance: NADROPARIN CALCIUM
     Indication: FACTOR V LEIDEN MUTATION
     Route: 058
  5. CHLORHEXIDINE [Suspect]
     Active Substance: CHLORHEXIDINE
     Indication: LIMB OPERATION
     Route: 061
     Dates: start: 20150715, end: 20150715
  6. FENTANYL. [Suspect]
     Active Substance: FENTANYL
     Indication: LIMB OPERATION
     Route: 040
     Dates: start: 20150715, end: 20150715
  7. ZINACEF [Suspect]
     Active Substance: CEFUROXIME SODIUM
     Indication: LIMB OPERATION
     Route: 041
     Dates: start: 20150715, end: 20150715

REACTIONS (4)
  - Chest discomfort [Recovered/Resolved]
  - Malaise [Recovered/Resolved]
  - Dyspnoea [Recovered/Resolved]
  - Pruritus [Recovered/Resolved]

NARRATIVE: CASE EVENT DATE: 20150715
